FAERS Safety Report 13758959 (Version 1)
Quarter: 2017Q3

REPORT INFORMATION
  Report Type: Spontaneous
  Country: US (occurrence: US)
  Receive Date: 20170717
  Receipt Date: 20170717
  Transmission Date: 20171127
  Serious: Yes (Hospitalization, Other)
  Sender: FDA-Public Use
  Company Number: US-LUPIN PHARMACEUTICALS INC.-2017-03714

PATIENT
  Age: 1 Year
  Sex: Male

DRUGS (1)
  1. CEFPROZIL FOR ORAL SUSPENSION USP 250 MG/5 ML [Suspect]
     Active Substance: CEFPROZIL
     Indication: ANTIBIOTIC PROPHYLAXIS
     Dosage: 7.5 ML, BID
     Route: 048
     Dates: start: 20170628

REACTIONS (5)
  - Drug ineffective [Unknown]
  - Abdominal discomfort [Unknown]
  - Product storage error [Unknown]
  - Dehydration [Unknown]
  - Diarrhoea [Unknown]

NARRATIVE: CASE EVENT DATE: 20170628
